FAERS Safety Report 6094358-8 (Version None)
Quarter: 2009Q1

REPORT INFORMATION
  Report Type: 
  Country: None (occurrence: None)
  Receive Date: 20090224
  Receipt Date: 20090217
  Transmission Date: 20090719
  Serious: Yes (Life-Threatening, Hospitalization)
  Sender: FDA-Public Use
  Company Number: TCI2009A00535

PATIENT
  Age: 66 Year
  Sex: Male

DRUGS (8)
  1. ACTOS [Suspect]
     Indication: TYPE 2 DIABETES MELLITUS
     Dosage: 15 MG (15 MG, 1 D), PER ORAL
     Route: 048
     Dates: start: 20080630, end: 20080718
  2. SULFONAMIDES, UREA DERIVATIVES [Concomitant]
  3. BIGUANIDES [Concomitant]
  4. CALCIUM CHANNEL BLOCKERS [Concomitant]
  5. HMG COA REDUCTASE INHIBITORS [Concomitant]
  6. ANTITHROMBOTIC AGENTS [Concomitant]
  7. ALPHA GLUCOSIDASE INHIBITORS [Concomitant]
  8. DIURETICS [Concomitant]

REACTIONS (4)
  - ACUTE MYOCARDIAL INFARCTION [None]
  - FACE OEDEMA [None]
  - MALAISE [None]
  - PALPITATIONS [None]
